FAERS Safety Report 7683878-8 (Version None)
Quarter: 2011Q3

REPORT INFORMATION
  Report Type: 
  Country: None (occurrence: None)
  Receive Date: 20110815
  Receipt Date: 20110804
  Transmission Date: 20111222
  Serious: Yes (Other)
  Sender: FDA-Public Use
  Company Number: US-BAYER-2011-009225

PATIENT
  Age: 20 Year
  Sex: Female
  Weight: 52.154 kg

DRUGS (9)
  1. OMEPRAZOLE [Concomitant]
     Dosage: 20 MG, QD
     Route: 048
     Dates: start: 20090603, end: 20090703
  2. NITROFURANTOIN [Concomitant]
     Dosage: 100 MG, UNK
     Route: 048
     Dates: start: 20090603, end: 20090703
  3. NITROFURANTOIN [Concomitant]
     Dosage: 100 MG, UNK
     Dates: start: 20090603, end: 20090703
  4. IBUPROFEN [Concomitant]
     Dosage: 800 MG, TID
     Route: 048
     Dates: start: 20090611, end: 20090701
  5. LEVAQUIN [Concomitant]
     Dosage: 500 MG, QD
     Route: 048
     Dates: start: 20090525, end: 20090604
  6. LEXAPRO [Concomitant]
     Dosage: 10 MG, UNK
     Route: 048
     Dates: start: 20090618, end: 20090708
  7. YAZ [Suspect]
     Indication: MENSTRUATION IRREGULAR
  8. YAZ [Suspect]
     Indication: ACNE
     Dosage: UNK
     Dates: start: 20080825, end: 20091101
  9. LEVOTHYROXINE SODIUM [Concomitant]
     Dosage: UNK
     Route: 048
     Dates: start: 20090622

REACTIONS (7)
  - BILIARY DYSKINESIA [None]
  - ABDOMINAL PAIN UPPER [None]
  - EMOTIONAL DISTRESS [None]
  - GALLBLADDER DISORDER [None]
  - PAIN [None]
  - ANXIETY [None]
  - INJURY [None]
